FAERS Safety Report 17849644 (Version 2)
Quarter: 2020Q2

REPORT INFORMATION
  Report Type: Spontaneous
  Country: US (occurrence: US)
  Receive Date: 20200602
  Receipt Date: 20200609
  Transmission Date: 20200714
  Serious: Yes (Death)
  Sender: FDA-Public Use
  Company Number: US-PFIZER INC-2020215182

PATIENT
  Age: 20 Year
  Sex: Male

DRUGS (3)
  1. CISPLATIN. [Suspect]
     Active Substance: CISPLATIN
     Indication: TESTIS CANCER
     Dosage: 15 MG/M2, DAILY (DAYS 1-5)
     Route: 042
  2. BLEOMYCIN SULFATE [Suspect]
     Active Substance: BLEOMYCIN SULFATE
     Indication: TESTIS CANCER
     Dosage: 15 IU, BIWEEKLY EVERY 28 DAYS
     Route: 042
  3. VINBLASTINE [Suspect]
     Active Substance: VINBLASTINE
     Indication: TESTIS CANCER
     Dosage: 12 MG/M2 (ON DAY 1)
     Route: 042

REACTIONS (1)
  - Arteriosclerosis coronary artery [Fatal]
